FAERS Safety Report 4338074-9 (Version None)
Quarter: 2004Q1

REPORT INFORMATION
  Report Type: 
  Country: None (occurrence: None)
  Receive Date: 20040329
  Receipt Date: 20040128
  Transmission Date: 20041129
  Serious: No
  Sender: FDA-Public Use
  Company Number: USA040157881

PATIENT
  Age: 47 Year
  Sex: Male
  Weight: 87 kg

DRUGS (4)
  1. STRATTERA [Suspect]
     Dosage: 40 MG/DAY
  2. DIOVAN [Concomitant]
  3. VERAPAMIL [Concomitant]
  4. TENORMIN [Concomitant]

REACTIONS (5)
  - BLOOD PRESSURE INCREASED [None]
  - FEELING ABNORMAL [None]
  - HEADACHE [None]
  - HYPERHIDROSIS [None]
  - SOMNOLENCE [None]
